FAERS Safety Report 8747068 (Version 2)
Quarter: 2013Q4

REPORT INFORMATION
  Report Type: Spontaneous
  Country: ES (occurrence: ES)
  Receive Date: 20120827
  Receipt Date: 20131108
  Transmission Date: 20140711
  Serious: Yes (Other)
  Sender: FDA-Public Use
  Company Number: ES-009507513-1208ESP010341

PATIENT
  Age: 51 Year
  Sex: Male

DRUGS (2)
  1. REBETOL CAPSULES 200MG [Suspect]
     Dosage: 1200/DIA Y PEGASYS SEMANAL.
     Route: 048
     Dates: start: 20110929
  2. PEGASYS [Suspect]
     Dosage: SEMANAL
     Route: 058
     Dates: start: 20110929

REACTIONS (2)
  - Anaemia [Recovered/Resolved]
  - Neutropenia [Recovered/Resolved]
